FAERS Safety Report 5750898-X (Version None)
Quarter: 2008Q2

REPORT INFORMATION
  Report Type: 
  Country: None (occurrence: None)
  Receive Date: 20080528
  Receipt Date: 20080523
  Transmission Date: 20081010
  Serious: Yes (Hospitalization)
  Sender: FDA-Public Use
  Company Number: FR-WYE-G01584808

PATIENT
  Sex: Male

DRUGS (6)
  1. ADVIL [Suspect]
     Indication: LYMPHADENOPATHY
     Dosage: 2 INTAKES
     Route: 048
     Dates: start: 20080309, end: 20080311
  2. ADVIL [Suspect]
     Indication: PYREXIA
  3. DOLIPRANE [Suspect]
     Indication: LYMPHADENOPATHY
     Dosage: ONE DOSE EVERY 5 HOURS
     Route: 048
     Dates: start: 20080309
  4. DOLIPRANE [Suspect]
     Indication: PYREXIA
  5. BRISTOPEN [Suspect]
     Indication: LYMPHADENOPATHY
     Dosage: UNKNOWN
     Route: 048
     Dates: start: 20080309, end: 20080301
  6. BRISTOPEN [Suspect]
     Indication: PYREXIA

REACTIONS (3)
  - GLOMERULONEPHRITIS ACUTE [None]
  - NEPHROTIC SYNDROME [None]
  - RENAL FAILURE ACUTE [None]
